APPROVED DRUG PRODUCT: AKRINOL
Active Ingredient: ACRISORCIN
Strength: 2MG/GM
Dosage Form/Route: CREAM;TOPICAL
Application: N012470 | Product #001
Applicant: SCHERING CORP SUB SCHERING PLOUGH CORP
Approved: Approved Prior to Jan 1, 1982 | RLD: No | RS: No | Type: DISCN